FAERS Safety Report 8064687-7 (Version None)
Quarter: 2012Q1

REPORT INFORMATION
  Report Type: 
  Country: None (occurrence: None)
  Receive Date: 20120123
  Receipt Date: 20120118
  Transmission Date: 20120608
  Serious: Yes (Life-Threatening, Hospitalization)
  Sender: FDA-Public Use
  Company Number: US-ASTRAZENECA-2012SE03643

PATIENT
  Age: 7 Year
  Sex: Male
  Weight: 33.2 kg

DRUGS (7)
  1. SEROQUEL XR [Suspect]
     Route: 048
     Dates: end: 20111020
  2. KAPVAY [Suspect]
     Indication: ATTENTION DEFICIT/HYPERACTIVITY DISORDER
     Route: 048
     Dates: start: 20111020, end: 20111107
  3. XANAX XR [Suspect]
     Route: 048
     Dates: start: 20111020, end: 20111107
  4. CLONIDINE [Concomitant]
     Dates: end: 20111021
  5. CLONIDINE [Concomitant]
  6. XANAX XR [Suspect]
     Route: 048
     Dates: end: 20111020
  7. SEROQUEL XR [Suspect]
     Route: 048
     Dates: start: 20111020, end: 20111107

REACTIONS (4)
  - AGGRESSION [None]
  - ANAPHYLACTIC REACTION [None]
  - AUTISM [None]
  - DRUG INEFFECTIVE FOR UNAPPROVED INDICATION [None]
